FAERS Safety Report 13060076 (Version 2)
Quarter: 2017Q1

REPORT INFORMATION
  Report Type: Report from Study
  Country: None (occurrence: US)
  Receive Date: 20161223
  Receipt Date: 20170209
  Transmission Date: 20170428
  Serious: Yes (Hospitalization)
  Sender: FDA-Public Use
  Company Number: US-ABBVIE-16K-163-1814922-00

PATIENT
  Age: 52 Year
  Sex: Male
  Weight: 63.56 kg

DRUGS (8)
  1. TALTZ [Suspect]
     Active Substance: IXEKIZUMAB
     Indication: PRODUCT USED FOR UNKNOWN INDICATION
     Route: 065
     Dates: start: 20160601, end: 201611
  2. TRAMADOL. [Concomitant]
     Active Substance: TRAMADOL
     Indication: ARTHRALGIA
  3. PRAVASTATIN. [Concomitant]
     Active Substance: PRAVASTATIN
     Indication: BLOOD CHOLESTEROL INCREASED
  4. HUMIRA [Suspect]
     Active Substance: ADALIMUMAB
     Route: 058
     Dates: start: 201611
  5. OTEZLA [Suspect]
     Active Substance: APREMILAST
     Indication: PRODUCT USED FOR UNKNOWN INDICATION
     Route: 065
  6. HUMIRA [Suspect]
     Active Substance: ADALIMUMAB
     Indication: PSORIATIC ARTHROPATHY
     Route: 058
     Dates: start: 2012, end: 2014
  7. ROBAXIN [Concomitant]
     Active Substance: METHOCARBAMOL
     Indication: PSORIATIC ARTHROPATHY
  8. MOBIC [Concomitant]
     Active Substance: MELOXICAM
     Indication: PSORIATIC ARTHROPATHY

REACTIONS (11)
  - Dehydration [Recovered/Resolved]
  - White blood cell count increased [Not Recovered/Not Resolved]
  - Testicular pain [Recovering/Resolving]
  - Malaise [Recovering/Resolving]
  - Crohn^s disease [Recovered/Resolved with Sequelae]
  - Gastrointestinal infection [Recovering/Resolving]
  - Chills [Recovered/Resolved]
  - Anaemia [Not Recovered/Not Resolved]
  - Colitis ulcerative [Recovered/Resolved with Sequelae]
  - Pyrexia [Recovered/Resolved]
  - Nausea [Recovered/Resolved]

NARRATIVE: CASE EVENT DATE: 2016
